FAERS Safety Report 19054919 (Version 1)
Quarter: 2021Q1

REPORT INFORMATION
  Report Type: Spontaneous
  Country: US (occurrence: US)
  Receive Date: 20210325
  Receipt Date: 20210325
  Transmission Date: 20210420
  Serious: No
  Sender: FDA-Public Use
  Company Number: US-EPICPHARMA-2020EPC00354

PATIENT
  Age: 61 Year
  Sex: Female

DRUGS (2)
  1. URSODIOL. [Suspect]
     Active Substance: URSODIOL
     Dosage: 600 MG, 2X/DAY
     Route: 048
  2. URSODIOL. [Suspect]
     Active Substance: URSODIOL
     Indication: PRIMARY BILIARY CHOLANGITIS
     Dosage: 600 MG, 2X/DAY
     Route: 048

REACTIONS (3)
  - Off label use [Not Recovered/Not Resolved]
  - Product taste abnormal [Recovered/Resolved]
  - Poor quality product administered [Recovered/Resolved]

NARRATIVE: CASE EVENT DATE: 20201110
